FAERS Safety Report 6768568-8 (Version None)
Quarter: 2010Q2

REPORT INFORMATION
  Report Type: 
  Country: None (occurrence: None)
  Receive Date: 20100614
  Receipt Date: 20100602
  Transmission Date: 20101027
  Serious: Yes (Life-Threatening, Other)
  Sender: FDA-Public Use
  Company Number: US-PFIZER INC-2010069528

PATIENT
  Sex: Male
  Weight: 84.354 kg

DRUGS (9)
  1. CHANTIX [Suspect]
     Indication: SMOKING CESSATION THERAPY
     Dosage: 0.5 MG, 1X/DAY
     Route: 048
     Dates: start: 20091007, end: 20091013
  2. PROZAC [Interacting]
     Indication: MENTAL DISORDER
     Dosage: UNK
     Route: 048
  3. AMITRIPTYLINE [Interacting]
     Indication: MENTAL DISORDER
     Dosage: UNK
     Route: 048
  4. SOMA [Concomitant]
     Indication: MUSCLE SPASMS
     Dosage: 350 MG, 4X/DAY
     Route: 048
  5. XANAX [Concomitant]
     Indication: ANXIETY
     Dosage: 1 MG, 2X/DAY
     Route: 048
  6. SPIRIVA [Concomitant]
     Indication: CHRONIC OBSTRUCTIVE PULMONARY DISEASE
     Dosage: UNK
     Route: 055
  7. OXYCODONE [Concomitant]
     Indication: PAIN
     Dosage: 15 MG, 4X/DAY
     Route: 048
  8. RESTORIL [Concomitant]
     Indication: SLEEP DISORDER
     Dosage: 30 MG, 1X/DAY
     Route: 048
  9. FLUTICASONE PROPIONATE [Concomitant]
     Indication: CHRONIC OBSTRUCTIVE PULMONARY DISEASE
     Dosage: 100 MG, 2X/DAY
     Route: 055

REACTIONS (8)
  - CONFUSIONAL STATE [None]
  - DRUG INTERACTION [None]
  - FEELING ABNORMAL [None]
  - HEPATITIS C [None]
  - IRRITABILITY [None]
  - NERVOUSNESS [None]
  - SUICIDAL IDEATION [None]
  - SURGERY [None]
